FAERS Safety Report 6158154-5 (Version None)
Quarter: 2009Q2

REPORT INFORMATION
  Report Type: 
  Country: None (occurrence: None)
  Receive Date: 20090414
  Receipt Date: 20090414
  Transmission Date: 20091009
  Serious: Yes (Life-Threatening)
  Sender: FDA-Public Use
  Company Number: None

PATIENT
  Sex: Female

DRUGS (2)
  1. LAMOTRIGINE [Suspect]
     Indication: CONVULSION
     Dosage: 150MG Q AM PO; 200 MG Q PM PO
     Route: 048
     Dates: start: 20080303
  2. LAMOTRIGINE [Suspect]
     Indication: CONVULSION
     Dosage: 150MG Q AM PO; 200 MG Q PM PO
     Route: 048
     Dates: start: 20090320

REACTIONS (5)
  - CONVULSION [None]
  - FALL [None]
  - HEAD INJURY [None]
  - SKIN LACERATION [None]
  - THERAPEUTIC RESPONSE UNEXPECTED WITH DRUG SUBSTITUTION [None]
